FAERS Safety Report 15783334 (Version 1)
Quarter: 2019Q1

REPORT INFORMATION
  Report Type: Spontaneous
  Country: GB (occurrence: GB)
  Receive Date: 20190102
  Receipt Date: 20190102
  Transmission Date: 20190417
  Serious: Yes (Other)
  Sender: FDA-Public Use
  Company Number: GB-MYLANLABS-2018M1098095

PATIENT
  Age: 7 Decade
  Sex: Male

DRUGS (4)
  1. FLUOROURACIL. [Suspect]
     Active Substance: FLUOROURACIL
     Indication: NEOPLASM MALIGNANT
     Route: 061
  2. TACROLIMUS. [Suspect]
     Active Substance: TACROLIMUS
     Indication: PROPHYLAXIS AGAINST TRANSPLANT REJECTION
     Dosage: 1.5 MILLIGRAM
     Route: 065
  3. ACITRETIN. [Suspect]
     Active Substance: ACITRETIN
     Indication: SKIN CANCER
     Dosage: LOW DOSE
     Route: 065
  4. SIROLIMUS. [Suspect]
     Active Substance: SIROLIMUS
     Indication: SKIN CANCER
     Dosage: EVERY MORNING, AT 3 MONTHS POST-OPERATIVELY
     Route: 065
     Dates: start: 2015

REACTIONS (3)
  - Skin erosion [Recovered/Resolved]
  - Squamous cell carcinoma of skin [Unknown]
  - Impaired healing [Recovered/Resolved]
